FAERS Safety Report 18911526 (Version 1)
Quarter: 2021Q1

REPORT INFORMATION
  Report Type: Report from Study
  Country: TR (occurrence: TR)
  Receive Date: 20210218
  Receipt Date: 20210218
  Transmission Date: 20210420
  Serious: Yes (Hospitalization, Other)
  Sender: FDA-Public Use
  Company Number: TR-INSUD PHARMA-2102TR00128

PATIENT

DRUGS (1)
  1. NUVESSA [Suspect]
     Active Substance: METRONIDAZOLE
     Indication: PRODUCT USED FOR UNKNOWN INDICATION
     Dosage: UNKNOWN
     Route: 065

REACTIONS (4)
  - Nervous system disorder [Not Recovered/Not Resolved]
  - Seizure [Unknown]
  - Altered state of consciousness [Unknown]
  - Toxic encephalopathy [Recovered/Resolved with Sequelae]
